FAERS Safety Report 14953992 (Version 2)
Quarter: 2018Q2

REPORT INFORMATION
  Report Type: Report from Study
  Country: None (occurrence: DE)
  Receive Date: 20180530
  Receipt Date: 20180619
  Transmission Date: 20180711
  Serious: Yes (Other)
  Sender: FDA-Public Use
  Company Number: DE-ABBVIE-18K-062-2371851-00

PATIENT
  Sex: Female

DRUGS (1)
  1. DUODOPA [Suspect]
     Active Substance: CARBIDOPA\LEVODOPA
     Indication: PARKINSON^S DISEASE
     Dosage: MD 4 ML; CRD 6,1 ML/ H; CRN 6,1 ML/ H; ED 4 ML
     Route: 050
     Dates: start: 20171115, end: 2018

REACTIONS (4)
  - Polyneuropathy [Not Recovered/Not Resolved]
  - Akinesia [Unknown]
  - General physical health deterioration [Not Recovered/Not Resolved]
  - Device dislocation [Unknown]
